FAERS Safety Report 13624314 (Version 1)
Quarter: 2017Q2

REPORT INFORMATION
  Report Type: Spontaneous
  Country: US (occurrence: US)
  Receive Date: 20170607
  Receipt Date: 20170607
  Transmission Date: 20170830
  Serious: No
  Sender: FDA-Public Use
  Company Number: US-PURDUE-USA-2016-0135133

PATIENT
  Age: 55 Year
  Sex: Female

DRUGS (2)
  1. BUTRANS [Suspect]
     Active Substance: BUPRENORPHINE
     Indication: POST PROCEDURAL COMPLICATION
     Dosage: 20 MCG/HR, WEEKLY
     Route: 062
     Dates: start: 201607
  2. BUTRANS [Suspect]
     Active Substance: BUPRENORPHINE
     Indication: PAIN

REACTIONS (2)
  - Inadequate analgesia [Unknown]
  - Product physical issue [Unknown]

NARRATIVE: CASE EVENT DATE: 20161130
